FAERS Safety Report 4362463-X (Version None)
Quarter: 2004Q2

REPORT INFORMATION
  Report Type: 
  Country: None (occurrence: None)
  Receive Date: 20040521
  Receipt Date: 20040510
  Transmission Date: 20050107
  Serious: Yes (Other)
  Sender: FDA-Public Use
  Company Number: NL-GLAXOSMITHKLINE-B0332459A

PATIENT
  Age: 79 Year
  Sex: Female
  Weight: 55 kg

DRUGS (7)
  1. PAROXETINE HCL [Suspect]
     Dosage: 20MG PER DAY
     Route: 048
     Dates: start: 19990101
  2. VENTOLIN [Concomitant]
  3. FLIXOTIDE [Concomitant]
  4. TEMAZEPAM [Concomitant]
     Route: 048
  5. OMEPRAZOLE [Concomitant]
     Route: 048
  6. METAMUCIL-2 [Concomitant]
  7. DOMPERIDONE [Concomitant]

REACTIONS (2)
  - MASTICATION DISORDER [None]
  - TARDIVE DYSKINESIA [None]
